FAERS Safety Report 12679914 (Version 1)
Quarter: 2016Q3

REPORT INFORMATION
  Report Type: Spontaneous
  Country: US (occurrence: US)
  Receive Date: 20160824
  Receipt Date: 20160824
  Transmission Date: 20161109
  Serious: Yes (Other)
  Sender: FDA-Public Use
  Company Number: US-UCBSA-2016031971

PATIENT
  Age: 25 Year
  Sex: Female

DRUGS (8)
  1. CLOBAZAM [Concomitant]
     Active Substance: CLOBAZAM
     Indication: EPILEPSY
     Dosage: UNKNOWN DOSE
  2. PERAMPANEL [Suspect]
     Active Substance: PERAMPANEL
     Dosage: INCREASED AT A RATE OF 2 MG/DAY EVERY 1-2 WEEKS
  3. VALPROIC ACID. [Concomitant]
     Active Substance: VALPROIC ACID
     Indication: EPILEPSY
     Dosage: UNKNOWN DOSE
  4. MIDAZOLAM [Concomitant]
     Active Substance: MIDAZOLAM\MIDAZOLAM HYDROCHLORIDE
     Indication: EPILEPSY
     Dosage: UNKNOWN DOSE
  5. PIRACETAM [Concomitant]
     Active Substance: PIRACETAM
     Indication: EPILEPSY
     Dosage: UNKNOWN DOSE
  6. LEVETIRACETAM. [Suspect]
     Active Substance: LEVETIRACETAM
     Indication: EPILEPSY
     Dosage: UNKNOWN DOSE
  7. PERAMPANEL [Suspect]
     Active Substance: PERAMPANEL
     Dosage: 8 MG/DAY
  8. PERAMPANEL [Suspect]
     Active Substance: PERAMPANEL
     Indication: EPILEPSY
     Dosage: BEGAN AT A DOSE OF 2 MG/DAY

REACTIONS (1)
  - Generalised tonic-clonic seizure [Unknown]
